FAERS Safety Report 7308372-5 (Version None)
Quarter: 2011Q1

REPORT INFORMATION
  Report Type: 
  Country: None (occurrence: None)
  Receive Date: 20110223
  Receipt Date: 20110217
  Transmission Date: 20110831
  Serious: Yes (Other)
  Sender: FDA-Public Use
  Company Number: B0701616A

PATIENT
  Sex: Male

DRUGS (1)
  1. SERETIDE [Suspect]
     Route: 065
     Dates: start: 20110201

REACTIONS (3)
  - WHEEZING [None]
  - PRODUCT QUALITY ISSUE [None]
  - ASTHMA [None]
